FAERS Safety Report 5040640-2 (Version None)
Quarter: 2006Q2

REPORT INFORMATION
  Report Type: 
  Country: None (occurrence: None)
  Receive Date: 20060630
  Receipt Date: 20060518
  Transmission Date: 20061013
  Serious: Yes (Hospitalization)
  Sender: FDA-Public Use
  Company Number: JP-MERCK-0605USA04278

PATIENT
  Age: 85 Year
  Sex: Male

DRUGS (9)
  1. TRUSOPT [Suspect]
     Indication: GLAUCOMA
     Route: 047
     Dates: start: 19970101, end: 20010301
  2. SANPILO [Concomitant]
     Indication: GLAUCOMA
     Route: 047
     Dates: start: 19970101, end: 20010201
  3. SANPILO [Concomitant]
     Route: 047
     Dates: start: 20010208, end: 20010201
  4. MIKELAN [Concomitant]
     Indication: GLAUCOMA
     Route: 047
     Dates: start: 19970101, end: 20010201
  5. MIKELAN [Concomitant]
     Route: 047
     Dates: start: 20010208, end: 20010301
  6. [THERAPY UNSPECIFIED] [Concomitant]
     Indication: CORNEAL EPITHELIUM DISORDER
     Route: 047
  7. [THERAPY UNSPECIFIED] [Concomitant]
     Route: 047
     Dates: start: 20010301
  8. FLUOROMETHOLONE [Concomitant]
     Indication: CORNEAL EPITHELIUM DISORDER
     Route: 047
     Dates: start: 20010201, end: 20010301
  9. ACETAZOLAMIDE [Concomitant]
     Route: 048
     Dates: end: 20010301

REACTIONS (1)
  - PEMPHIGOID [None]
